FAERS Safety Report 9917713 (Version 1)
Quarter: 2014Q1

REPORT INFORMATION
  Report Type: Spontaneous
  Country: US (occurrence: US)
  Receive Date: 20140221
  Receipt Date: 20140221
  Transmission Date: 20141002
  Serious: Yes (Other)
  Sender: FDA-Public Use
  Company Number: US-BAXTER-2014BAX007721

PATIENT
  Age: 75 Year
  Sex: Female

DRUGS (2)
  1. GAMMAGARD LIQUID [Suspect]
     Indication: GUILLAIN-BARRE SYNDROME
     Route: 042
  2. METHYLPREDNISOLONE [Suspect]
     Indication: PRODUCT USED FOR UNKNOWN INDICATION
     Route: 065

REACTIONS (5)
  - Influenza A virus test positive [Unknown]
  - Campylobacter test positive [Unknown]
  - Helicobacter test positive [Unknown]
  - Cytomegalovirus test positive [Unknown]
  - Epstein-Barr virus test positive [Unknown]
